FAERS Safety Report 15420673 (Version 1)
Quarter: 2018Q3

REPORT INFORMATION
  Report Type: Spontaneous
  Country: US (occurrence: US)
  Receive Date: 20180924
  Receipt Date: 20180924
  Transmission Date: 20181010
  Serious: No
  Sender: FDA-Public Use
  Company Number: US-ALLERGAN-1817152US

PATIENT
  Sex: Female

DRUGS (2)
  1. LINZESS [Suspect]
     Active Substance: LINACLOTIDE
     Dosage: 72 ?G, PRN
     Route: 065
  2. LINZESS [Suspect]
     Active Substance: LINACLOTIDE
     Indication: PRODUCT USED FOR UNKNOWN INDICATION
     Dosage: 145 ?G, PRN
     Route: 065

REACTIONS (6)
  - Gastric polyps [Unknown]
  - Off label use [Unknown]
  - Wrong technique in product usage process [Unknown]
  - Contraindicated drug prescribed [Unknown]
  - Neuropathy peripheral [Unknown]
  - Bone pain [Unknown]
